FAERS Safety Report 23742207 (Version 1)
Quarter: 2024Q2

REPORT INFORMATION
  Report Type: Spontaneous
  Country: JP (occurrence: JP)
  Receive Date: 20240415
  Receipt Date: 20240415
  Transmission Date: 20240716
  Serious: Yes (Death, Other)
  Sender: FDA-Public Use
  Company Number: JP-STRIDES ARCOLAB LIMITED-2024SP004176

PATIENT
  Age: 6 Decade
  Sex: Female

DRUGS (80)
  1. LETROZOLE [Suspect]
     Active Substance: LETROZOLE
     Indication: Oestrogen receptor assay positive
     Dosage: UNK (FOR 3 MONTHS)
     Route: 065
  2. LETROZOLE [Suspect]
     Active Substance: LETROZOLE
     Indication: Progesterone receptor assay positive
  3. LETROZOLE [Suspect]
     Active Substance: LETROZOLE
     Indication: Breast cancer metastatic
  4. LETROZOLE [Suspect]
     Active Substance: LETROZOLE
     Indication: Human epidermal growth factor receptor negative
  5. LETROZOLE [Suspect]
     Active Substance: LETROZOLE
     Indication: Metastases to liver
  6. NIVOLUMAB [Suspect]
     Active Substance: NIVOLUMAB
     Indication: Oestrogen receptor assay positive
     Dosage: UNK (FOR 6 MONTHS)
     Route: 065
  7. NIVOLUMAB [Suspect]
     Active Substance: NIVOLUMAB
     Indication: Progesterone receptor assay positive
  8. NIVOLUMAB [Suspect]
     Active Substance: NIVOLUMAB
     Indication: Human epidermal growth factor receptor negative
  9. NIVOLUMAB [Suspect]
     Active Substance: NIVOLUMAB
     Indication: Breast cancer metastatic
  10. NIVOLUMAB [Suspect]
     Active Substance: NIVOLUMAB
     Indication: Metastases to liver
  11. FULVESTRANT [Suspect]
     Active Substance: FULVESTRANT
     Indication: Oestrogen receptor assay positive
     Dosage: UNK (FOR 6 MONTHS)
     Route: 065
  12. FULVESTRANT [Suspect]
     Active Substance: FULVESTRANT
     Indication: Breast cancer metastatic
  13. FULVESTRANT [Suspect]
     Active Substance: FULVESTRANT
     Indication: Human epidermal growth factor receptor negative
  14. FULVESTRANT [Suspect]
     Active Substance: FULVESTRANT
     Indication: Progesterone receptor assay positive
  15. FULVESTRANT [Suspect]
     Active Substance: FULVESTRANT
     Indication: Metastases to liver
  16. ERIBULIN [Suspect]
     Active Substance: ERIBULIN
     Indication: Oestrogen receptor assay positive
     Dosage: UNK (FOR 9 MONTHS)
     Route: 065
  17. ERIBULIN [Suspect]
     Active Substance: ERIBULIN
     Indication: Human epidermal growth factor receptor negative
  18. ERIBULIN [Suspect]
     Active Substance: ERIBULIN
     Indication: Breast cancer metastatic
  19. ERIBULIN [Suspect]
     Active Substance: ERIBULIN
     Indication: Progesterone receptor assay positive
  20. ERIBULIN [Suspect]
     Active Substance: ERIBULIN
     Indication: Metastases to liver
  21. GEMCITABINE [Suspect]
     Active Substance: GEMCITABINE
     Indication: Oestrogen receptor assay positive
     Dosage: UNK (ONE COURSE)
     Route: 065
  22. GEMCITABINE [Suspect]
     Active Substance: GEMCITABINE
     Indication: Progesterone receptor assay positive
     Dosage: UNK
     Route: 065
  23. GEMCITABINE [Suspect]
     Active Substance: GEMCITABINE
     Indication: Human epidermal growth factor receptor negative
  24. GEMCITABINE [Suspect]
     Active Substance: GEMCITABINE
     Indication: Breast cancer metastatic
  25. GEMCITABINE [Suspect]
     Active Substance: GEMCITABINE
     Indication: Metastases to liver
  26. GEMCITABINE [Suspect]
     Active Substance: GEMCITABINE
     Indication: Metastases to bone
  27. VINORELBINE [Suspect]
     Active Substance: VINORELBINE TARTRATE
     Indication: Oestrogen receptor assay positive
     Dosage: UNK (ONE COURSE)
     Route: 065
  28. VINORELBINE [Suspect]
     Active Substance: VINORELBINE TARTRATE
     Indication: Progesterone receptor assay positive
  29. VINORELBINE [Suspect]
     Active Substance: VINORELBINE TARTRATE
     Indication: Human epidermal growth factor receptor negative
  30. VINORELBINE [Suspect]
     Active Substance: VINORELBINE TARTRATE
     Indication: Breast cancer metastatic
  31. VINORELBINE [Suspect]
     Active Substance: VINORELBINE TARTRATE
     Indication: Metastases to liver
  32. TOREMIFENE [Suspect]
     Active Substance: TOREMIFENE
     Indication: Oestrogen receptor assay positive
     Dosage: UNK (WITH HIGH DOSE FOR 3 MONTHS)
     Route: 065
  33. TOREMIFENE [Suspect]
     Active Substance: TOREMIFENE
     Indication: Human epidermal growth factor receptor negative
  34. TOREMIFENE [Suspect]
     Active Substance: TOREMIFENE
     Indication: Breast cancer metastatic
  35. TOREMIFENE [Suspect]
     Active Substance: TOREMIFENE
     Indication: Progesterone receptor assay positive
  36. TOREMIFENE [Suspect]
     Active Substance: TOREMIFENE
     Indication: Metastases to liver
  37. ABEMACICLIB [Suspect]
     Active Substance: ABEMACICLIB
     Indication: Oestrogen receptor assay positive
     Dosage: UNK (WITH HIGH DOSE FOR 3 MONTHS ~)
     Route: 065
  38. ABEMACICLIB [Suspect]
     Active Substance: ABEMACICLIB
     Indication: Progesterone receptor assay positive
  39. ABEMACICLIB [Suspect]
     Active Substance: ABEMACICLIB
     Indication: Human epidermal growth factor receptor negative
  40. ABEMACICLIB [Suspect]
     Active Substance: ABEMACICLIB
     Indication: Breast cancer metastatic
  41. ABEMACICLIB [Suspect]
     Active Substance: ABEMACICLIB
     Indication: Metastases to liver
  42. CAPECITABINE [Suspect]
     Active Substance: CAPECITABINE
     Indication: Oestrogen receptor assay positive
     Dosage: UNK (ONE COURSE)
     Route: 065
  43. CAPECITABINE [Suspect]
     Active Substance: CAPECITABINE
     Indication: Progesterone receptor assay positive
  44. CAPECITABINE [Suspect]
     Active Substance: CAPECITABINE
     Indication: Human epidermal growth factor receptor negative
  45. CAPECITABINE [Suspect]
     Active Substance: CAPECITABINE
     Indication: Breast cancer metastatic
  46. CAPECITABINE [Suspect]
     Active Substance: CAPECITABINE
     Indication: Metastases to liver
  47. FLUOROURACIL [Suspect]
     Active Substance: FLUOROURACIL
     Indication: Metastases to liver
     Dosage: UNK
     Route: 065
  48. FLUOROURACIL [Suspect]
     Active Substance: FLUOROURACIL
     Indication: Oestrogen receptor assay positive
     Dosage: UNK, (RESUMED)
     Route: 065
  49. FLUOROURACIL [Suspect]
     Active Substance: FLUOROURACIL
     Indication: Progesterone receptor assay positive
  50. FLUOROURACIL [Suspect]
     Active Substance: FLUOROURACIL
     Indication: Human epidermal growth factor receptor negative
  51. FLUOROURACIL [Suspect]
     Active Substance: FLUOROURACIL
     Indication: Breast cancer metastatic
  52. EPIRUBICIN [Suspect]
     Active Substance: EPIRUBICIN
     Indication: Metastases to liver
     Dosage: UNK
     Route: 065
  53. EPIRUBICIN [Suspect]
     Active Substance: EPIRUBICIN
     Indication: Oestrogen receptor assay positive
     Dosage: UNK, (RESUMED)
     Route: 065
  54. EPIRUBICIN [Suspect]
     Active Substance: EPIRUBICIN
     Indication: Progesterone receptor assay positive
  55. EPIRUBICIN [Suspect]
     Active Substance: EPIRUBICIN
     Indication: Human epidermal growth factor receptor negative
  56. EPIRUBICIN [Suspect]
     Active Substance: EPIRUBICIN
     Indication: Breast cancer metastatic
  57. MITOMYCIN [Suspect]
     Active Substance: MITOMYCIN
     Indication: Metastases to liver
     Dosage: UNK
     Route: 065
  58. MITOMYCIN [Suspect]
     Active Substance: MITOMYCIN
     Indication: Oestrogen receptor assay positive
     Dosage: UNK, (RESUMED)
     Route: 065
  59. MITOMYCIN [Suspect]
     Active Substance: MITOMYCIN
     Indication: Progesterone receptor assay positive
  60. MITOMYCIN [Suspect]
     Active Substance: MITOMYCIN
     Indication: Human epidermal growth factor receptor negative
  61. MITOMYCIN [Suspect]
     Active Substance: MITOMYCIN
     Indication: Breast cancer metastatic
  62. DENOSUMAB [Suspect]
     Active Substance: DENOSUMAB
     Indication: Oestrogen receptor assay positive
     Dosage: UNK
     Route: 065
  63. DENOSUMAB [Suspect]
     Active Substance: DENOSUMAB
     Indication: Breast cancer metastatic
  64. DENOSUMAB [Suspect]
     Active Substance: DENOSUMAB
     Indication: Human epidermal growth factor receptor negative
  65. DENOSUMAB [Suspect]
     Active Substance: DENOSUMAB
     Indication: Progesterone receptor assay positive
  66. DENOSUMAB [Suspect]
     Active Substance: DENOSUMAB
     Indication: Metastases to liver
  67. PACLITAXEL [Suspect]
     Active Substance: PACLITAXEL
     Indication: Oestrogen receptor assay positive
     Dosage: UNK
     Route: 065
  68. PACLITAXEL [Suspect]
     Active Substance: PACLITAXEL
     Indication: Progesterone receptor assay positive
  69. PACLITAXEL [Suspect]
     Active Substance: PACLITAXEL
     Indication: Human epidermal growth factor receptor negative
  70. PACLITAXEL [Suspect]
     Active Substance: PACLITAXEL
     Indication: Breast cancer metastatic
  71. PACLITAXEL [Suspect]
     Active Substance: PACLITAXEL
     Indication: Metastases to liver
  72. PACLITAXEL [Suspect]
     Active Substance: PACLITAXEL
     Indication: Metastases to bone
  73. BEVACIZUMAB [Suspect]
     Active Substance: BEVACIZUMAB
     Indication: Oestrogen receptor assay positive
     Dosage: UNK
     Route: 065
  74. BEVACIZUMAB [Suspect]
     Active Substance: BEVACIZUMAB
     Indication: Progesterone receptor assay positive
  75. BEVACIZUMAB [Suspect]
     Active Substance: BEVACIZUMAB
     Indication: Human epidermal growth factor receptor negative
  76. BEVACIZUMAB [Suspect]
     Active Substance: BEVACIZUMAB
     Indication: Breast cancer metastatic
  77. BEVACIZUMAB [Suspect]
     Active Substance: BEVACIZUMAB
     Indication: Metastases to liver
  78. BEVACIZUMAB [Suspect]
     Active Substance: BEVACIZUMAB
     Indication: Metastases to bone
  79. TAMOXIFEN [Suspect]
     Active Substance: TAMOXIFEN
     Indication: Breast cancer metastatic
     Dosage: UNK
     Route: 065
  80. LEUPROLIDE ACETATE [Suspect]
     Active Substance: ISOPROPYL ALCOHOL\LEUPROLIDE ACETATE
     Indication: Breast cancer metastatic
     Dosage: UNK
     Route: 065

REACTIONS (3)
  - Death [Fatal]
  - Condition aggravated [Unknown]
  - Drug ineffective [Unknown]
